FAERS Safety Report 18270317 (Version 1)
Quarter: 2020Q3

REPORT INFORMATION
  Report Type: Spontaneous
  Country: PL (occurrence: PL)
  Receive Date: 20200915
  Receipt Date: 20200915
  Transmission Date: 20201103
  Serious: Yes (Other)
  Sender: FDA-Public Use
  Company Number: PL-PFIZER INC-2020350999

PATIENT
  Age: 75 Year
  Sex: Male

DRUGS (2)
  1. GEMCITABINE HYDROCHLORIDE. [Suspect]
     Active Substance: GEMCITABINE HYDROCHLORIDE
     Indication: BLADDER CANCER
     Dosage: 1250 MG/M2, CYCLIC (ON DAYS 1 AND 8 ? IN CYCLES OF 21 DAYS, 3 CHEMOTHERAPY CYCLES)
     Dates: start: 200901, end: 200903
  2. CISPLATIN. [Suspect]
     Active Substance: CISPLATIN
     Indication: BLADDER CANCER
     Dosage: 75 MG/M2, CYCLIC (ON DAY 1, 3 CHEMOTHERAPY CYCLES)
     Dates: start: 200901, end: 200903

REACTIONS (3)
  - Thrombocytopenia [Unknown]
  - Agranulocytosis [Unknown]
  - Anaemia [Unknown]
